FAERS Safety Report 19159330 (Version 1)
Quarter: 2021Q2

REPORT INFORMATION
  Report Type: Spontaneous
  Country: US (occurrence: US)
  Receive Date: 20210420
  Receipt Date: 20210420
  Transmission Date: 20210717
  Serious: Yes (Other)
  Sender: FDA-Public Use
  Company Number: US-PURDUE-USA-2021-0244518

PATIENT
  Sex: Male

DRUGS (3)
  1. DILAUDID [Suspect]
     Active Substance: HYDROMORPHONE HYDROCHLORIDE
     Indication: CARDIAC OPERATION
     Dosage: UNK
     Route: 048
  2. OXYCONTIN [Suspect]
     Active Substance: OXYCODONE HYDROCHLORIDE
     Indication: CARDIAC OPERATION
     Dosage: UNK
     Route: 048
  3. OXYCODONE HCL CR TABLETS (SIMILAR TO NDA 22?272) [Suspect]
     Active Substance: OXYCODONE HYDROCHLORIDE
     Indication: CARDIAC OPERATION
     Dosage: UNK
     Route: 048

REACTIONS (4)
  - Cardiac disorder [Unknown]
  - Drug dependence [Unknown]
  - Product use issue [Unknown]
  - Congenital anomaly [Unknown]
